FAERS Safety Report 5761268-2 (Version None)
Quarter: 2008Q2

REPORT INFORMATION
  Report Type: 
  Country: None (occurrence: None)
  Receive Date: 20080606
  Receipt Date: 20080603
  Transmission Date: 20081010
  Serious: Yes (Hospitalization)
  Sender: FDA-Public Use
  Company Number: GR-JNJFOC-20080600630

PATIENT
  Sex: Female
  Weight: 115 kg

DRUGS (2)
  1. PALIPERIDONE [Suspect]
     Indication: SCHIZOPHRENIA
     Route: 048
  2. SEROXAT [Suspect]
     Indication: MAJOR DEPRESSION

REACTIONS (2)
  - DEPRESSION [None]
  - PSYCHOTIC DISORDER [None]
